FAERS Safety Report 17814544 (Version 1)
Quarter: 2020Q2

REPORT INFORMATION
  Report Type: Report from Study
  Country: QA (occurrence: QA)
  Receive Date: 20200522
  Receipt Date: 20200522
  Transmission Date: 20200714
  Serious: Yes (Other)
  Sender: FDA-Public Use
  Company Number: QA-ROCHE-2599699

PATIENT

DRUGS (3)
  1. TOCILIZUMAB. [Suspect]
     Active Substance: TOCILIZUMAB
     Indication: COVID-19
     Dosage: ON DAY 1
     Route: 042
  2. RIBAVIRIN. [Suspect]
     Active Substance: RIBAVIRIN
     Indication: COVID-19
     Route: 065
  3. PEGINTERFERON ALFA-2A. [Suspect]
     Active Substance: PEGINTERFERON ALFA-2A
     Indication: COVID-19
     Route: 065

REACTIONS (18)
  - Amylase increased [Unknown]
  - Anaemia [Unknown]
  - Electrocardiogram QT prolonged [Unknown]
  - Aspartate aminotransferase increased [Unknown]
  - Off label use [Unknown]
  - Herpes simplex reactivation [Unknown]
  - Lipase increased [Unknown]
  - Hypertriglyceridaemia [Unknown]
  - Intentional product use issue [Unknown]
  - Acute kidney injury [Unknown]
  - Klebsiella infection [Unknown]
  - Pseudomonas infection [Unknown]
  - Pancreatitis [Unknown]
  - Hyperkalaemia [Unknown]
  - Staphylococcal infection [Unknown]
  - Atrial fibrillation [Unknown]
  - Alanine aminotransferase increased [Unknown]
  - Disseminated intravascular coagulation [Unknown]
